FAERS Safety Report 11757363 (Version 1)
Quarter: 2015Q4

REPORT INFORMATION
  Report Type: Report from Study
  Country: US (occurrence: None)
  Receive Date: 20151117
  Receipt Date: 20151117
  Transmission Date: 20160304
  Serious: Yes (Hospitalization)
  Sender: FDA-Public Use
  Company Number: 2015US004431

PATIENT
  Sex: Female

DRUGS (18)
  1. OXYGEN (OXYGEN) [Concomitant]
     Active Substance: OXYGEN
  2. DOXEPIN (DOXEPIN) [Concomitant]
  3. LEVALBUTEROL (LEVOSALBUTAMOL) [Concomitant]
  4. DULERA (FORMOTEROL FUMARATE, MOMETASONE FUROATE) [Concomitant]
  5. BUMETANIDE (BUMETANIDE) [Concomitant]
     Active Substance: BUMETANIDE
  6. SPIRIVA [Concomitant]
     Active Substance: TIOTROPIUM BROMIDE MONOHYDRATE
  7. PROMETHAZINE [Concomitant]
     Active Substance: PROMETHAZINE\PROMETHAZINE HYDROCHLORIDE
  8. ENDOCET (OXYCODONE HYDROCHLORIDE, PARACETAMOL) [Concomitant]
  9. GLASSIA [Suspect]
     Active Substance: .ALPHA.1-PROTEINASE INHIBITOR HUMAN
     Indication: PRODUCT USED FOR UNKNOWN INDICATION
     Route: 042
     Dates: end: 20150423
  10. POTASSIUM (POTASSIUM) [Concomitant]
     Active Substance: POTASSIUM
  11. LOPERAMIDE (LOPERAMIDE) [Concomitant]
     Active Substance: LOPERAMIDE
  12. OMEPRAZOLE (OMEPRAZOLE) [Concomitant]
     Active Substance: OMEPRAZOLE
  13. HYDROCODONE/HOMATROPINE (HOMATROPINE METHYLBROMIDE, HYDROCODONE BITARTRATE) [Concomitant]
  14. SENNA PLUS? (SENNA ALEXANDRINA) [Concomitant]
  15. METOPROLOL (METOPROLOL) [Concomitant]
     Active Substance: METOPROLOL
  16. ASPIRIN (ACETYLSALICYLIC ACID) [Concomitant]
     Active Substance: ASPIRIN
  17. AMIODARONE (AMIODARONE) [Concomitant]
     Active Substance: AMIODARONE
  18. CLONAZEPAM (CLONAZEPAM) [Concomitant]
     Active Substance: CLONAZEPAM

REACTIONS (3)
  - Dyspnoea [None]
  - Drug ineffective [None]
  - Oxygen saturation abnormal [None]
